FAERS Safety Report 8360425-9 (Version None)
Quarter: 2012Q1

REPORT INFORMATION
  Report Type: 
  Country: None (occurrence: None)
  Receive Date: 20120323
  Receipt Date: 20110118
  Transmission Date: 20120608
  Serious: Yes (Hospitalization)
  Sender: FDA-Public Use
  Company Number: 163-21880-11012019

PATIENT
  Age: 72 Year
  Sex: Female
  Weight: 39.5 kg

DRUGS (3)
  1. REVLIMID [Suspect]
     Indication: MULTIPLE MYELOMA
     Dosage: 25 MG, 1 IN 1 D, PO   15 MG, 1 IN 1 D, PO  15 MG, DAILY FOR 21 DAYS, PO
     Route: 048
     Dates: start: 20090505
  2. REVLIMID [Suspect]
     Indication: MULTIPLE MYELOMA
     Dosage: 25 MG, 1 IN 1 D, PO   15 MG, 1 IN 1 D, PO  15 MG, DAILY FOR 21 DAYS, PO
     Route: 048
     Dates: start: 20090801
  3. REVLIMID [Suspect]
     Indication: MULTIPLE MYELOMA
     Dosage: 25 MG, 1 IN 1 D, PO   15 MG, 1 IN 1 D, PO  15 MG, DAILY FOR 21 DAYS, PO
     Route: 048
     Dates: start: 20100929

REACTIONS (3)
  - ABASIA [None]
  - ASTHENIA [None]
  - FULL BLOOD COUNT DECREASED [None]
